FAERS Safety Report 19949755 (Version 1)
Quarter: 2021Q4

REPORT INFORMATION
  Report Type: Spontaneous
  Country: US (occurrence: US)
  Receive Date: 20211013
  Receipt Date: 20211013
  Transmission Date: 20220303
  Serious: Yes (Hospitalization, Other)
  Sender: FDA-Public Use
  Company Number: US-TARO-2021TAR01018

PATIENT
  Age: 22 Year
  Sex: Female

DRUGS (1)
  1. LAMOTRIGINE [Suspect]
     Active Substance: LAMOTRIGINE
     Indication: Borderline personality disorder
     Dosage: UNK, OVERDOSE OF APPROXIMATELY 6,000MG
     Route: 065

REACTIONS (5)
  - Delirium [Unknown]
  - Overdose [Unknown]
  - Agitation [Unknown]
  - Drug eruption [Unknown]
  - Toxicity to various agents [Unknown]
